FAERS Safety Report 4474010-2 (Version None)
Quarter: 2004Q4

REPORT INFORMATION
  Report Type: 
  Country: None (occurrence: None)
  Receive Date: 20041008
  Receipt Date: 20040916
  Transmission Date: 20050328
  Serious: Yes (Hospitalization)
  Sender: FDA-Public Use
  Company Number: USA040465222

PATIENT
  Age: 86 Year
  Sex: Female
  Weight: 54 kg

DRUGS (11)
  1. FORTEO [Suspect]
     Indication: OSTEOPOROSIS
     Dosage: 20 UG /1 DAY
     Dates: start: 20040329, end: 20040601
  2. COUMADIN [Concomitant]
  3. ATENOLOL [Concomitant]
  4. PREVACID [Concomitant]
  5. CALCIUM CARBONATE [Concomitant]
  6. MULTIVITAMIN [Concomitant]
  7. ALBUTEROL [Concomitant]
  8. QVAR (BECLOMETASONE DIPROPIONATE) [Concomitant]
  9. TYLENOL [Concomitant]
  10. VITAMIN D [Concomitant]
  11. VITAMIN CAP [Concomitant]

REACTIONS (12)
  - ANOREXIA [None]
  - ARTHROPOD BITE [None]
  - DIZZINESS [None]
  - DRUG INTERACTION [None]
  - DRUG LEVEL DECREASED [None]
  - EMBOLIC STROKE [None]
  - INFLUENZA [None]
  - INTERNATIONAL NORMALISED RATIO DECREASED [None]
  - PHARMACEUTICAL PRODUCT COMPLAINT [None]
  - RASH [None]
  - SOMNOLENCE [None]
  - WEIGHT DECREASED [None]
